FAERS Safety Report 9068466 (Version 1)
Quarter: 2013Q1

REPORT INFORMATION
  Report Type: Spontaneous
  Country: US (occurrence: None)
  Receive Date: 20130212
  Receipt Date: 20130212
  Transmission Date: 20140127
  Serious: Yes (Disabling)
  Sender: FDA-Public Use
  Company Number: None

PATIENT
  Age: 54 Year
  Sex: Female

DRUGS (1)
  1. ATORVASTATIN [Suspect]
     Indication: BLOOD CHOLESTEROL INCREASED
     Dosage: 10 MG, ONE TABLE
     Dates: start: 20120928, end: 20130207

REACTIONS (4)
  - Pain [None]
  - Arthralgia [None]
  - Myalgia [None]
  - Exercise tolerance decreased [None]
